FAERS Safety Report 20920601 (Version 1)
Quarter: 2022Q2

REPORT INFORMATION
  Report Type: Spontaneous
  Country: US (occurrence: None)
  Receive Date: 20220606
  Receipt Date: 20220606
  Transmission Date: 20220721
  Serious: Yes (Life-Threatening, Hospitalization)
  Sender: FDA-Public Use
  Company Number: None

PATIENT
  Age: 77 Year
  Sex: Male
  Weight: 90 kg

DRUGS (1)
  1. HEPARIN SODIUM [Suspect]
     Active Substance: HEPARIN SODIUM
     Indication: Deep vein thrombosis
     Dosage: 7.6 ML ONCE IV
     Route: 042
     Dates: start: 20220222

REACTIONS (5)
  - Abdominal pain lower [None]
  - Intra-abdominal haematoma [None]
  - Anaemia [None]
  - Therapy interrupted [None]
  - Coagulopathy [None]

NARRATIVE: CASE EVENT DATE: 20220228
